FAERS Safety Report 4557037-1 (Version None)
Quarter: 2005Q1

REPORT INFORMATION
  Report Type: 
  Country: None (occurrence: None)
  Receive Date: 20050118
  Receipt Date: 20050106
  Transmission Date: 20050727
  Serious: Yes (Disabling)
  Sender: FDA-Public Use
  Company Number: 2005UW00581

PATIENT
  Age: 30 Year
  Sex: Female

DRUGS (1)
  1. ZOLADEX [Suspect]
     Indication: ENDOMETRIOSIS
     Dosage: 3.6 MG SQ
     Route: 058

REACTIONS (2)
  - DRUG TOXICITY [None]
  - ENCEPHALOPATHY [None]
